FAERS Safety Report 5265829-9 (Version None)
Quarter: 2007Q1

REPORT INFORMATION
  Report Type: 
  Country: None (occurrence: None)
  Receive Date: 20070313
  Receipt Date: 20070313
  Transmission Date: 20070707
  Serious: Yes (Hospitalization)
  Sender: FDA-Public Use
  Company Number: None

PATIENT
  Age: 82 Year
  Sex: Male
  Weight: 79 kg

DRUGS (2)
  1. PREDNISONE [Suspect]
     Indication: ARTHRITIS
     Dosage: 10MG X 3 DAYS, 1 TAB X 3 DAYS PO
     Route: 048
     Dates: start: 20070212, end: 20070223
  2. WARFARIN SODIUM [Suspect]
     Indication: THROMBOSIS PROPHYLAXIS
     Dosage: TAKE ONE TABLET EVERY MON, WED, FR PO
     Route: 048
     Dates: start: 20060224, end: 20070223

REACTIONS (6)
  - CHEST PAIN [None]
  - HYPERGLYCAEMIA [None]
  - INTERNATIONAL NORMALISED RATIO INCREASED [None]
  - PLEURITIC PAIN [None]
  - TEMPORAL ARTERITIS [None]
  - TREATMENT NONCOMPLIANCE [None]
